FAERS Safety Report 9292162 (Version 3)
Quarter: 2013Q3

REPORT INFORMATION
  Report Type: Spontaneous
  Country: NL (occurrence: NL)
  Receive Date: 20130516
  Receipt Date: 20130726
  Transmission Date: 20140515
  Serious: Yes (Hospitalization)
  Sender: FDA-Public Use
  Company Number: NL-AMGEN-NLDSP2013034403

PATIENT
  Age: 66 Year
  Sex: Female

DRUGS (11)
  1. NEULASTA [Suspect]
     Indication: CHEMOTHERAPY
     Dosage: 6 MG, Q3WK
     Route: 058
     Dates: start: 20130303
  2. PERINDOPRIL [Concomitant]
     Dosage: UNK
  3. DEXAMETHASON                       /00016001/ [Concomitant]
     Dosage: UNK
  4. CYCLOPHOSPHAMIDE [Concomitant]
     Dosage: UNK
  5. DOXORUBICINE                       /00330901/ [Concomitant]
     Dosage: UNK
  6. ACETYLSALICYLZUUR [Concomitant]
     Dosage: UNK
  7. PANTOPRAZOL [Concomitant]
     Dosage: UNK
  8. SIMVASTATINE [Concomitant]
     Dosage: UNK
  9. METOPROLOL [Concomitant]
     Dosage: UNK
  10. AMLODIPINE [Concomitant]
     Dosage: UNK
  11. GRANISETRON [Concomitant]
     Dosage: UNK

REACTIONS (5)
  - Pyrexia [Unknown]
  - Gastrointestinal infection [Unknown]
  - Bacterial infection [Unknown]
  - Diarrhoea [Unknown]
  - Urinary tract infection bacterial [Unknown]
